FAERS Safety Report 15641733 (Version 2)
Quarter: 2018Q4

REPORT INFORMATION
  Report Type: Report from Study
  Country: None (occurrence: CO)
  Receive Date: 20181121
  Receipt Date: 20181225
  Transmission Date: 20190205
  Serious: Yes (Hospitalization)
  Sender: FDA-Public Use
  Company Number: CO-ABBVIE-18S-036-2562799-00

PATIENT
  Age: 56 Year
  Sex: Female

DRUGS (1)
  1. ZEMPLAR [Suspect]
     Active Substance: PARICALCITOL
     Indication: HYPERPARATHYROIDISM SECONDARY
     Dosage: POST DIALYSIS
     Route: 042
     Dates: start: 20180912, end: 20181008

REACTIONS (3)
  - Malaise [Recovered/Resolved]
  - Sepsis [Recovered/Resolved]
  - Stenosis [Recovered/Resolved]

NARRATIVE: CASE EVENT DATE: 20181109
